FAERS Safety Report 12881399 (Version 2)
Quarter: 2017Q1

REPORT INFORMATION
  Report Type: Spontaneous
  Country: US (occurrence: US)
  Receive Date: 20161025
  Receipt Date: 20170116
  Transmission Date: 20170428
  Serious: No
  Sender: FDA-Public Use
  Company Number: US-JNJFOC-20161006767

PATIENT
  Age: 53 Year
  Sex: Female
  Weight: 88.45 kg

DRUGS (1)
  1. RISPERDAL CONSTA [Suspect]
     Active Substance: RISPERIDONE
     Indication: SCHIZOPHRENIA
     Route: 030

REACTIONS (4)
  - Accidental exposure to product [Unknown]
  - Drug dose omission [Unknown]
  - Device leakage [Unknown]
  - Device malfunction [Unknown]

NARRATIVE: CASE EVENT DATE: 20161006
